FAERS Safety Report 7724220-3 (Version None)
Quarter: 2011Q3

REPORT INFORMATION
  Report Type: 
  Country: None (occurrence: None)
  Receive Date: 20110901
  Receipt Date: 20110822
  Transmission Date: 20111222
  Serious: Yes (Other)
  Sender: FDA-Public Use
  Company Number: US-PERRIGO-11US007121

PATIENT
  Sex: Female
  Weight: 57.143 kg

DRUGS (2)
  1. FLUOXETINE [Concomitant]
     Indication: DEPRESSION
     Dosage: 20 MG, QD
     Route: 048
     Dates: start: 20100101
  2. ACETAMINOPHEN [Suspect]
     Indication: HEADACHE
     Dosage: 2 CAPLETS TWICE
     Route: 048
     Dates: start: 20110801, end: 20110801

REACTIONS (4)
  - CHEST DISCOMFORT [None]
  - TOXICITY TO VARIOUS AGENTS [None]
  - ABDOMINAL PAIN UPPER [None]
  - DRUG INEFFECTIVE [None]
